FAERS Safety Report 7341616-2 (Version None)
Quarter: 2011Q1

REPORT INFORMATION
  Report Type: 
  Country: None (occurrence: None)
  Receive Date: 20110228
  Receipt Date: 20110218
  Transmission Date: 20110831
  Serious: Yes (Death, Hospitalization)
  Sender: FDA-Public Use
  Company Number: 2011EN000060

PATIENT
  Age: 79 Year
  Sex: Male

DRUGS (4)
  1. ABELCET [Suspect]
     Indication: NEUTROPHILIA
     Dosage: 105 MG; X1; IV
     Route: 042
     Dates: start: 20110216, end: 20110216
  2. TRIATEC [Concomitant]
  3. ATACAND [Concomitant]
  4. LOPRESSOR [Concomitant]

REACTIONS (4)
  - ACUTE MYOCARDIAL INFARCTION [None]
  - ILEUS PARALYTIC [None]
  - ACUTE PULMONARY OEDEMA [None]
  - HYPOKALAEMIA [None]
